FAERS Safety Report 11620656 (Version 3)
Quarter: 2016Q1

REPORT INFORMATION
  Report Type: Spontaneous
  Country: US (occurrence: US)
  Receive Date: 20151012
  Receipt Date: 20160106
  Transmission Date: 20160525
  Serious: Yes (Death)
  Sender: FDA-Public Use
  Company Number: US-PFIZER INC-2015328149

PATIENT
  Age: 76 Year
  Sex: Male
  Weight: 106 kg

DRUGS (2)
  1. SUTENT [Suspect]
     Active Substance: SUNITINIB MALATE
     Indication: RENAL CANCER
     Dosage: 50 MG, CYCLIC (FOR 14 DAYS)
     Route: 048
     Dates: start: 20150922
  2. SUTENT [Suspect]
     Active Substance: SUNITINIB MALATE
     Dosage: UNK

REACTIONS (5)
  - Renal cancer [Fatal]
  - Muscular weakness [Unknown]
  - Gait disturbance [Unknown]
  - Arthralgia [Unknown]
  - Disease progression [Fatal]

NARRATIVE: CASE EVENT DATE: 20150928
